FAERS Safety Report 7199674-4 (Version None)
Quarter: 2010Q4

REPORT INFORMATION
  Report Type: 
  Country: None (occurrence: None)
  Receive Date: 20101228
  Receipt Date: 20101217
  Transmission Date: 20110411
  Serious: Yes (Other)
  Sender: FDA-Public Use
  Company Number: CA-ELI_LILLY_AND_COMPANY-CA201012004759

PATIENT
  Age: 64 Year
  Sex: Female

DRUGS (11)
  1. FORTEO [Suspect]
     Indication: OSTEOPOROSIS
     Dosage: 20 UG, DAILY (1/D)
     Route: 058
     Dates: start: 20100421
  2. LEVOTHYROXINE [Concomitant]
     Dosage: UNK, DAILY (1/D)
  3. ATIVAN [Concomitant]
     Dosage: UNK, QHS
  4. MULTI-VITAMINS [Concomitant]
  5. VITAMIN B COMPLEX [Concomitant]
  6. ASCORBIC ACID [Concomitant]
  7. ZINC [Concomitant]
  8. SELENIUM [Concomitant]
  9. STRONTIUM [Concomitant]
  10. ANTIOXIDANT /02147801/ [Concomitant]
  11. CALCIUM [Concomitant]
     Dosage: 1500 MG, DAILY (1/D)

REACTIONS (5)
  - ARTHRALGIA [None]
  - BLINDNESS [None]
  - MUSCLE SPASMS [None]
  - PAIN IN EXTREMITY [None]
  - TENDON PAIN [None]
